FAERS Safety Report 8353224-5 (Version None)
Quarter: 2012Q2

REPORT INFORMATION
  Report Type: 
  Country: None (occurrence: None)
  Receive Date: 20120511
  Receipt Date: 20120430
  Transmission Date: 20120825
  Serious: Yes (Other)
  Sender: FDA-Public Use
  Company Number: DE-FRI-1000030399

PATIENT
  Age: 71 Year
  Sex: Male
  Weight: 85 kg

DRUGS (8)
  1. ROFLUMILAST [Suspect]
     Indication: CHRONIC OBSTRUCTIVE PULMONARY DISEASE
     Dosage: 500 MCG
     Route: 048
     Dates: start: 20120321, end: 20120423
  2. OLMESARTAN MEDOXOMIL [Concomitant]
  3. BISOPROLOL FUMARATE [Concomitant]
  4. ALLOPURINOL [Concomitant]
  5. TAMSULOSIN HCL [Concomitant]
  6. ASPIRIN [Concomitant]
     Dosage: 100 MILLIGRAMS
  7. SPIRIVA [Concomitant]
     Dates: start: 20111114
  8. SIMVASTATIN [Concomitant]

REACTIONS (1)
  - EPIGASTRIC DISCOMFORT [None]
